FAERS Safety Report 15394170 (Version 1)
Quarter: 2018Q3

REPORT INFORMATION
  Report Type: Other
  Country: DE (occurrence: DE)
  Receive Date: 20180918
  Receipt Date: 20180918
  Transmission Date: 20181010
  Serious: Yes (Other)
  Sender: FDA-Public Use
  Company Number: DE-LUPIN PHARMACEUTICALS INC.-2018-06369

PATIENT
  Sex: Male
  Weight: 3.24 kg

DRUGS (3)
  1. PIPAMPERONE [Suspect]
     Active Substance: PIPAMPERONE
     Indication: BORDERLINE PERSONALITY DISORDER
     Dosage: 60 [MG/D ]
     Route: 064
     Dates: start: 20170504, end: 20180128
  2. VENLAFAXINE [Suspect]
     Active Substance: VENLAFAXINE HYDROCHLORIDE
     Indication: BORDERLINE PERSONALITY DISORDER
     Dosage: 225 [MG/D ]
     Route: 064
     Dates: start: 20170504, end: 20180128
  3. LAMOTRIGINE. [Suspect]
     Active Substance: LAMOTRIGINE
     Indication: BORDERLINE PERSONALITY DISORDER
     Dosage: 400 MG/D AY/ 300?400 MG/DAY
     Route: 064
     Dates: start: 20170504, end: 20180128

REACTIONS (2)
  - Drug withdrawal syndrome neonatal [Recovered/Resolved]
  - Foetal exposure during pregnancy [Unknown]
